FAERS Safety Report 4672665-0 (Version None)
Quarter: 2005Q2

REPORT INFORMATION
  Report Type: 
  Country: None (occurrence: None)
  Receive Date: 20050524
  Receipt Date: 20050412
  Transmission Date: 20051028
  Serious: Yes (Hospitalization, Other)
  Sender: FDA-Public Use
  Company Number: US-MERCK-0504USA01777

PATIENT
  Age: 11 Year
  Sex: Male
  Weight: 31 kg

DRUGS (2)
  1. SINGULAIR [Suspect]
     Indication: ASTHMA
     Route: 048
     Dates: start: 20050301, end: 20050327
  2. PULMICORT [Concomitant]
     Route: 065

REACTIONS (4)
  - ATRIAL FIBRILLATION [None]
  - CHEST DISCOMFORT [None]
  - HEART RATE INCREASED [None]
  - PRESCRIBED OVERDOSE [None]
